FAERS Safety Report 15218487 (Version 2)
Quarter: 2018Q4

REPORT INFORMATION
  Report Type: Spontaneous
  Country: US (occurrence: US)
  Receive Date: 20180730
  Receipt Date: 20181013
  Transmission Date: 20190204
  Serious: Yes (Death, Other)
  Sender: FDA-Public Use
  Company Number: US-009507513-1807USA010665

PATIENT
  Age: 30 Year
  Sex: Female

DRUGS (1)
  1. ZEPATIER [Suspect]
     Active Substance: ELBASVIR\GRAZOPREVIR
     Indication: HEPATITIS C
     Dosage: 100 MG, DAILY
     Route: 048
     Dates: start: 20180329

REACTIONS (1)
  - Death [Fatal]

NARRATIVE: CASE EVENT DATE: 20180508
